FAERS Safety Report 25913342 (Version 1)
Quarter: 2025Q4

REPORT INFORMATION
  Report Type: Spontaneous
  Country: US (occurrence: US)
  Receive Date: 20251013
  Receipt Date: 20251013
  Transmission Date: 20260118
  Serious: No
  Sender: ROCHE
  Company Number: US-ROCHE-10000401682

PATIENT
  Sex: Female

DRUGS (7)
  1. TRASTUZUMAB [Suspect]
     Active Substance: TRASTUZUMAB
     Indication: Breast cancer
     Route: 042
  2. LETROZOLE 2.5 MG ORAL TAB [Concomitant]
     Route: 048
  3. ATROPINE;DIPHENOXYLATE 0.025-2.5 MG ORAL TAB 4 TIMES A DAY [Concomitant]
     Indication: Diarrhoea
     Dosage: 0.025 MG- 2.5 MG
     Route: 048
  4. ROSUVASTATIN 10 MG ORAL TAB DAILY [Concomitant]
     Route: 048
  5. ALBUTEROL [SALBUTAMOL] INHALE 2 PUFFS EVERY 4 HOURS [Concomitant]
     Indication: Wheezing
     Dosage: 2 PUFFS
     Route: 055
  6. DULOXETINE 20 MG ORAL DELAYED RELEASE CAPSULE [Concomitant]
     Route: 048
  7. DICYCLOMINE 20 MG ORAL TAB 4 TIMES A DAY [Concomitant]
     Route: 048

REACTIONS (1)
  - Fatigue [Unknown]
